FAERS Safety Report 18036166 (Version 2)
Quarter: 2021Q4

REPORT INFORMATION
  Report Type: Report from Study
  Country: US (occurrence: US)
  Receive Date: 20200717
  Receipt Date: 20211022
  Transmission Date: 20220303
  Serious: No
  Sender: FDA-Public Use
  Company Number: US-ACADIA PHARMACEUTICALS INC.-ACA-2020-PIM-002080

PATIENT
  Sex: Male
  Weight: 68 kg

DRUGS (6)
  1. NUPLAZID [Suspect]
     Active Substance: PIMAVANSERIN TARTRATE
     Indication: Parkinson^s disease psychosis
     Dosage: 34 MILLIGRAM, QD
     Route: 048
     Dates: start: 201901, end: 202109
  2. NUPLAZID [Suspect]
     Active Substance: PIMAVANSERIN TARTRATE
     Indication: Hallucination
  3. NUPLAZID [Suspect]
     Active Substance: PIMAVANSERIN TARTRATE
     Indication: Delusion
  4. CARBIDOPA\LEVODOPA [Concomitant]
     Active Substance: CARBIDOPA\LEVODOPA
  5. REQUIP [Concomitant]
     Active Substance: ROPINIROLE HYDROCHLORIDE
  6. PROPRANOLOL HYDROCHLORIDE [Concomitant]
     Active Substance: PROPRANOLOL HYDROCHLORIDE

REACTIONS (13)
  - COVID-19 [Unknown]
  - Tooth extraction [Unknown]
  - Tremor [Unknown]
  - Chills [Unknown]
  - Nightmare [Unknown]
  - Abnormal dreams [Unknown]
  - Sleep disorder [Unknown]
  - Memory impairment [Unknown]
  - Weight decreased [Unknown]
  - Dizziness [Unknown]
  - Hypotension [Unknown]
  - Hallucination [Unknown]
  - Hallucination [Unknown]

NARRATIVE: CASE EVENT DATE: 20190101
